FAERS Safety Report 17980668 (Version 1)
Quarter: 2020Q3

REPORT INFORMATION
  Report Type: Spontaneous
  Country: US (occurrence: US)
  Receive Date: 20200704
  Receipt Date: 20200704
  Transmission Date: 20201103
  Serious: No
  Sender: FDA-Public Use
  Company Number: US-TEVA-2020-US-1797699

PATIENT
  Sex: Female
  Weight: 65.77 kg

DRUGS (10)
  1. PROVERA [Suspect]
     Active Substance: MEDROXYPROGESTERONE ACETATE
     Route: 048
  2. MEDROXYPROGESTERONE ACETATE GREENSTONE [Suspect]
     Active Substance: MEDROXYPROGESTERONE ACETATE
     Indication: HORMONE THERAPY
     Dosage: 2.5MG; TAKE ONE DAILY BY MOUTH DAILY FOR 10 DAYS AND OFF FOR 20
     Route: 048
  3. SOTALOL HYDROCHLORIDE. [Concomitant]
     Active Substance: SOTALOL HYDROCHLORIDE
     Indication: ATRIAL FIBRILLATION
     Dosage: 80MG; TAKE TWICE DAILY BY MOUTH
  4. MEDROXYPROGESTERONE TEVA [Suspect]
     Active Substance: MEDROXYPROGESTERONE
     Indication: HORMONE THERAPY
     Dosage: 2.5MG; TAKE ONE DAILY BY MOUTH DAILY FOR 10 DAYS AND OFF FOR 20
     Route: 048
  5. MEDROXYPROGESTERONE TEVA [Suspect]
     Active Substance: MEDROXYPROGESTERONE
     Dosage: 5MG; TAKE ONE HALF ONCE DAILY FOR 10 DAYS AND THEN OFF FOR 20MG
     Route: 048
  6. MEDROXYPROGESTERONE ACETATE GREENSTONE [Suspect]
     Active Substance: MEDROXYPROGESTERONE ACETATE
     Dosage: 5MG; TAKE ONE HALF ONCE DAILY FOR 10 DAYS AND THEN OFF FOR 20MG
     Route: 048
  7. PROVERA [Suspect]
     Active Substance: MEDROXYPROGESTERONE ACETATE
     Indication: HORMONE THERAPY
     Dosage: 5MG; WHITE SCORED HEXAGONAL; TAKE ONE?HALF ONCE DAILY FOR 10 DAY AND THEN OFF 20 DAYS
     Route: 048
  8. ELIQUIS [Concomitant]
     Active Substance: APIXABAN
     Indication: ANTICOAGULANT THERAPY
     Dates: start: 2016
  9. ESTRADIOL NOVARTIS [Concomitant]
     Dosage: 5MG CUT IN HALF; ONE PATCH TWICE WEEKLY TO SKIN, CHANGING EVERY 4 DAYS, FOR 20 DAYS
     Route: 062
  10. LOSARTAN POTASSIUM. [Concomitant]
     Active Substance: LOSARTAN POTASSIUM
     Indication: BLOOD PRESSURE MEASUREMENT
     Dosage: 25MG; TAKE ONCE DAILY BY MOUTH; TAKING SINCE 2015 OR 2016
     Route: 048

REACTIONS (1)
  - Blood pressure increased [Unknown]
